FAERS Safety Report 7406977-4 (Version None)
Quarter: 2011Q2

REPORT INFORMATION
  Report Type: 
  Country: None (occurrence: None)
  Receive Date: 20110411
  Receipt Date: 20090625
  Transmission Date: 20111010
  Serious: Yes (Death, Hospitalization, Other)
  Sender: FDA-Public Use
  Company Number: US-BAYER-200924884NA

PATIENT
  Age: 85 Year
  Sex: Female
  Weight: 167 kg

DRUGS (23)
  1. DIGOXIN [Concomitant]
     Dosage: 0.25 MG, QD
     Route: 048
  2. NITROGLYCERIN [Concomitant]
     Dosage: UNK
     Route: 042
     Dates: start: 20030909, end: 20030909
  3. TRASYLOL [Suspect]
     Indication: PHLEBECTOMY
  4. COUMADIN [Concomitant]
     Dosage: 1 MG, QD
     Route: 048
  5. VECURONIUM BROMIDE [Concomitant]
     Dosage: UNK
     Route: 042
     Dates: start: 20030909, end: 20030909
  6. MILRINONE [Concomitant]
     Dosage: 3.75 MG, UNK
     Route: 042
     Dates: start: 20030909, end: 20030909
  7. PROTAMINE SULFATE [Concomitant]
     Dosage: 500 MG, UNK
     Route: 042
     Dates: start: 20030909, end: 20030909
  8. ACETYLSALICYLIC ACID SRT [Concomitant]
     Dosage: 81 MG, QD
     Route: 048
  9. TRASYLOL [Suspect]
     Indication: CORONARY ARTERY BYPASS
     Dosage: 200ML LOADING DOSE FOLLOWED BY 50ML/HR DRIP
     Route: 042
     Dates: start: 20030909, end: 20030909
  10. TRASYLOL [Suspect]
     Indication: INTRA-AORTIC BALLOON PLACEMENT
  11. ANCEF [Concomitant]
     Dosage: 1 G, UNK
     Route: 042
     Dates: start: 20030909, end: 20030909
  12. LIDOCAINE [Concomitant]
     Dosage: 100 MG, SECOND SURGERY
     Route: 042
     Dates: start: 20030909, end: 20030909
  13. INSULIN [INSULIN] [Concomitant]
     Dosage: UNK
     Route: 042
     Dates: start: 20030909, end: 20030909
  14. EPINEPHRINE [Concomitant]
     Dosage: RATE VARIED
     Route: 042
     Dates: start: 20030909, end: 20030909
  15. CARDIZEM [Concomitant]
     Dosage: 120 MG, QD
     Route: 048
  16. COZAAR [Concomitant]
     Dosage: 100 MG, QD
     Route: 048
  17. ZOCOR [Concomitant]
     Dosage: 40 MG, QD
     Route: 048
  18. ACTOS [Concomitant]
     Dosage: 15 MG, QD
     Route: 048
  19. VERSED [Concomitant]
     Dosage: 30 MG, UNK
     Route: 042
     Dates: start: 20030909, end: 20030909
  20. HEPARIN [Concomitant]
     Dosage: 25000 U, FIRST SURGERY
     Route: 042
     Dates: start: 20030909, end: 20030909
  21. HEPARIN [Concomitant]
     Dosage: 45000 U, SECOND SURGERY
     Route: 042
     Dates: start: 20030909, end: 20030909
  22. FENTANYL [Concomitant]
     Dosage: UNK
     Route: 042
     Dates: start: 20030909, end: 20030909
  23. LEVOPHED [Concomitant]
     Dosage: RATE VARIED
     Route: 042
     Dates: start: 20030909, end: 20030909

REACTIONS (15)
  - RENAL INJURY [None]
  - EMOTIONAL DISTRESS [None]
  - STRESS [None]
  - MYOCARDIAL INFARCTION [None]
  - ANHEDONIA [None]
  - DEATH [None]
  - RENAL FAILURE ACUTE [None]
  - RENAL FAILURE [None]
  - FEAR [None]
  - MULTI-ORGAN FAILURE [None]
  - UNEVALUABLE EVENT [None]
  - ANXIETY [None]
  - PAIN [None]
  - INJURY [None]
  - RENAL IMPAIRMENT [None]
